FAERS Safety Report 23579066 (Version 1)
Quarter: 2024Q1

REPORT INFORMATION
  Report Type: Spontaneous
  Country: US (occurrence: US)
  Receive Date: 20240229
  Receipt Date: 20240229
  Transmission Date: 20240409
  Serious: Yes (Hospitalization)
  Sender: FDA-Public Use
  Company Number: US-QILU PHARMACEUTICAL (HAINAN) CO.  LTD.-QLH-000021-2024

PATIENT
  Age: 47 Year
  Sex: Male

DRUGS (2)
  1. PEMETREXED DISODIUM [Suspect]
     Active Substance: PEMETREXED DISODIUM
     Indication: Non-small cell lung cancer metastatic
     Dosage: 1.1 G EVERY THREE WEEKS OVER THE PAST EIGHT MONTHS
     Route: 065
  2. Loratinib [Concomitant]
     Dosage: UNK
     Route: 065

REACTIONS (1)
  - Pseudocellulitis [Recovering/Resolving]
